FAERS Safety Report 20094827 (Version 2)
Quarter: 2021Q4

REPORT INFORMATION
  Report Type: Spontaneous
  Country: US (occurrence: US)
  Receive Date: 20211122
  Receipt Date: 20211217
  Transmission Date: 20220303
  Serious: No
  Sender: FDA-Public Use
  Company Number: US-ELI_LILLY_AND_COMPANY-US202111006955

PATIENT
  Age: 39 Year
  Sex: Female

DRUGS (3)
  1. EMGALITY [Suspect]
     Active Substance: GALCANEZUMAB-GNLM
     Indication: Migraine
     Dosage: 120 MG, UNKNOWN
     Route: 065
  2. EMGALITY [Suspect]
     Active Substance: GALCANEZUMAB-GNLM
     Dosage: 120 MG, UNKNOWN
     Route: 065
  3. BOTOX [Concomitant]
     Active Substance: ONABOTULINUMTOXINA
     Indication: Product used for unknown indication

REACTIONS (10)
  - Visual impairment [Unknown]
  - Tinnitus [Unknown]
  - Road traffic accident [Unknown]
  - Injury [Unknown]
  - Migraine [Unknown]
  - Headache [Unknown]
  - Pain in extremity [Unknown]
  - Neck pain [Unknown]
  - Neuralgia [Unknown]
  - Injection site injury [Unknown]

NARRATIVE: CASE EVENT DATE: 20211011
